FAERS Safety Report 6146602-6 (Version None)
Quarter: 2009Q2

REPORT INFORMATION
  Report Type: 
  Country: None (occurrence: None)
  Receive Date: 20090407
  Receipt Date: 20090330
  Transmission Date: 20091009
  Serious: Yes (Hospitalization)
  Sender: FDA-Public Use
  Company Number: FR-ASTRAZENECA-2009CG00608

PATIENT
  Age: 76 Year
  Sex: Female

DRUGS (1)
  1. TENORETIC 100 [Suspect]
     Indication: HYPERTENSION
     Dosage: 50 + 12.5 MG
     Route: 048
     Dates: end: 20081101

REACTIONS (3)
  - ATRIOVENTRICULAR BLOCK [None]
  - CONDUCTION DISORDER [None]
  - PRESYNCOPE [None]
